FAERS Safety Report 6805613-5 (Version None)
Quarter: 2010Q2

REPORT INFORMATION
  Report Type: 
  Country: None (occurrence: None)
  Receive Date: 20100628
  Receipt Date: 20080124
  Transmission Date: 20101027
  Serious: No
  Sender: FDA-Public Use
  Company Number: US-PFIZER INC-2008008905

PATIENT
  Age: 51 Year
  Sex: Female

DRUGS (6)
  1. GEODON [Suspect]
     Dates: start: 20070101
  2. LEXAPRO [Concomitant]
  3. EFFEXOR XR [Concomitant]
  4. LAMICTAL [Concomitant]
  5. NEURONTIN [Concomitant]
  6. ALL OTHER THERAPEUTIC PRODUCTS [Concomitant]

REACTIONS (2)
  - INFLUENZA LIKE ILLNESS [None]
  - WEIGHT INCREASED [None]
